FAERS Safety Report 19988862 (Version 1)
Quarter: 2021Q4

REPORT INFORMATION
  Report Type: Report from Study
  Country: None (occurrence: AR)
  Receive Date: 20211024
  Receipt Date: 20211024
  Transmission Date: 20220303
  Serious: Yes (Death)
  Sender: FDA-Public Use
  Company Number: AR-ABBVIE-21K-007-4132730-00

PATIENT
  Sex: Male

DRUGS (1)
  1. RINVOQ [Suspect]
     Active Substance: UPADACITINIB
     Indication: Rheumatoid arthritis
     Route: 048
     Dates: start: 20210415

REACTIONS (1)
  - Infection [Fatal]
